FAERS Safety Report 9395469 (Version 1)
Quarter: 2013Q3

REPORT INFORMATION
  Report Type: Spontaneous
  Country: FR (occurrence: FR)
  Receive Date: 20130711
  Receipt Date: 20130711
  Transmission Date: 20140515
  Serious: Yes (Other)
  Sender: FDA-Public Use
  Company Number: FR-TEVA-418138ISR

PATIENT
  Sex: Female

DRUGS (2)
  1. METFORMINE [Suspect]
     Indication: DIABETES MELLITUS
     Route: 048
  2. GLIMEPIRIDE [Suspect]
     Indication: DIABETES MELLITUS
     Dosage: 3 MILLIGRAM DAILY;
     Route: 048

REACTIONS (4)
  - Diabetes mellitus inadequate control [Unknown]
  - Nausea [Unknown]
  - Vertigo [Unknown]
  - Weight decreased [Unknown]
